FAERS Safety Report 8952125 (Version 2)
Quarter: 2013Q2

REPORT INFORMATION
  Report Type: Spontaneous
  Country: US (occurrence: US)
  Receive Date: 20121204
  Receipt Date: 20130404
  Transmission Date: 20140414
  Serious: No
  Sender: FDA-Public Use
  Company Number: US-AMGEN-USASP2012062034

PATIENT
  Age: 26 Year
  Sex: Female
  Weight: 72.56 kg

DRUGS (6)
  1. ENBREL [Suspect]
     Indication: ANKYLOSING SPONDYLITIS
     Dosage: 50 MG, QWK
     Route: 058
     Dates: start: 201203
  2. ENBREL [Suspect]
     Indication: PSORIATIC ARTHROPATHY
  3. INDOCIN                            /00003801/ [Concomitant]
     Indication: ARTHRALGIA
     Dosage: 75 MG, BID
     Route: 048
     Dates: start: 2005
  4. INDOCIN                            /00003801/ [Concomitant]
     Indication: PSORIATIC ARTHROPATHY
  5. METHOTREXATE [Concomitant]
     Indication: PSORIATIC ARTHROPATHY
     Dosage: 17.5 MG, QWK
     Route: 048
     Dates: start: 201007
  6. FOLIC ACID [Concomitant]
     Dosage: 1 MG, QD
     Route: 048
     Dates: start: 201007

REACTIONS (3)
  - Synovitis [Unknown]
  - Joint effusion [Recovering/Resolving]
  - Drug ineffective [Unknown]
